FAERS Safety Report 5734448-X (Version None)
Quarter: 2008Q2

REPORT INFORMATION
  Report Type: 
  Country: None (occurrence: None)
  Receive Date: 20080508
  Receipt Date: 20080508
  Transmission Date: 20081010
  Serious: Yes (Other)
  Sender: FDA-Public Use
  Company Number: None

PATIENT
  Age: 79 Year
  Sex: Male
  Weight: 81.6475 kg

DRUGS (1)
  1. CREST PRO HEALTH CLEAN MINT PROCTER + GAMBLE [Suspect]
     Indication: GINGIVITIS
     Dosage: 4 TEASPOONS NIGHTLY

REACTIONS (4)
  - AGEUSIA [None]
  - PHARMACEUTICAL PRODUCT COMPLAINT [None]
  - TONGUE BLACK HAIRY [None]
  - TOOTH DISCOLOURATION [None]
